FAERS Safety Report 7015965-1 (Version None)
Quarter: 2010Q3

REPORT INFORMATION
  Report Type: 
  Country: None (occurrence: None)
  Receive Date: 20100927
  Receipt Date: 20091013
  Transmission Date: 20110219
  Serious: No
  Sender: FDA-Public Use
  Company Number: US-ASTRAZENECA-2009SE19715

PATIENT
  Age: 59 Year
  Sex: Female
  Weight: 120.7 kg

DRUGS (1)
  1. ARIMIDEX [Suspect]
     Route: 048

REACTIONS (5)
  - BONE PAIN [None]
  - DIARRHOEA [None]
  - FALL [None]
  - HEADACHE [None]
  - WEIGHT INCREASED [None]
